FAERS Safety Report 9714597 (Version 1)
Quarter: 2013Q4

REPORT INFORMATION
  Report Type: Spontaneous
  Country: US (occurrence: US)
  Receive Date: 20131126
  Receipt Date: 20131126
  Transmission Date: 20140711
  Serious: No
  Sender: FDA-Public Use
  Company Number: US-PFIZER INC-2013336529

PATIENT
  Sex: Female

DRUGS (2)
  1. NEURONTIN [Suspect]
     Indication: LIMB DISCOMFORT
     Dosage: 1800 MG, 1X/DAY
  2. NEURONTIN [Suspect]
     Indication: BACK DISORDER

REACTIONS (4)
  - Off label use [Unknown]
  - Sensation of heaviness [Unknown]
  - Paraesthesia [Unknown]
  - Hyperhidrosis [Unknown]
